FAERS Safety Report 17218700 (Version 2)
Quarter: 2023Q1

REPORT INFORMATION
  Report Type: Other
  Country: IT (occurrence: IT)
  Receive Date: 20191231
  Receipt Date: 20230206
  Transmission Date: 20230417
  Serious: Yes (Other)
  Sender: FDA-Public Use
  Company Number: IT-002147023-NVSC2019IT055963

PATIENT
  Age: 42 Year
  Sex: Male

DRUGS (2)
  1. TRASTUZUMAB [Suspect]
     Active Substance: TRASTUZUMAB
     Indication: Colorectal cancer metastatic
     Dosage: 16 COURSES
     Route: 065
     Dates: start: 201410
  2. LAPATINIB [Suspect]
     Active Substance: LAPATINIB
     Indication: Colorectal cancer metastatic
     Dosage: 16 COURSES
     Route: 065
     Dates: start: 201410

REACTIONS (2)
  - Malignant neoplasm progression [Unknown]
  - Metastases to lung [Unknown]
